FAERS Safety Report 15093979 (Version 1)
Quarter: 2018Q3

REPORT INFORMATION
  Report Type: Other
  Country: CA (occurrence: CA)
  Receive Date: 20180629
  Receipt Date: 20180629
  Transmission Date: 20181010
  Serious: Yes (Other)
  Sender: FDA-Public Use
  Company Number: CA-AYTU BIOSCIENCES, INC.-2018AYT000112

PATIENT

DRUGS (8)
  1. CLONIDINE. [Suspect]
     Active Substance: CLONIDINE
  2. RAMIPRIL. [Suspect]
     Active Substance: RAMIPRIL
  3. TOLTERODINE [Suspect]
     Active Substance: TOLTERODINE
  4. NATESTO [Suspect]
     Active Substance: TESTOSTERONE
     Indication: PRODUCT USED FOR UNKNOWN INDICATION
  5. JANUVIA [Suspect]
     Active Substance: SITAGLIPTIN PHOSPHATE
  6. QUETIAPINE. [Suspect]
     Active Substance: QUETIAPINE
  7. INVEGA SUSTENNA [Suspect]
     Active Substance: PALIPERIDONE PALMITATE
  8. DOXEPIN [Suspect]
     Active Substance: DOXEPIN

REACTIONS (6)
  - Seizure [None]
  - Hallucination [None]
  - Dry mouth [None]
  - Constipation [None]
  - Muscle twitching [None]
  - Diarrhoea [None]
